FAERS Safety Report 6164347-3 (Version None)
Quarter: 2009Q2

REPORT INFORMATION
  Report Type: 
  Country: None (occurrence: None)
  Receive Date: 20090420
  Receipt Date: 20090402
  Transmission Date: 20091009
  Serious: Yes (Hospitalization)
  Sender: FDA-Public Use
  Company Number: 000625

PATIENT
  Sex: Female

DRUGS (8)
  1. VIMPAT [Suspect]
     Dosage: (250 MG, 100 MG A.M. AND 150 MG P.M.)
     Dates: start: 20090201, end: 20090201
  2. LAMOTRIGINE [Concomitant]
  3. QUETIAPINE FUMARATE [Concomitant]
  4. LEVETIRACETAM [Concomitant]
  5. ALENDRONIC ACID [Concomitant]
  6. MOVICOL /01749801/ [Concomitant]
  7. ADCAL /00056901/ [Concomitant]
  8. TEMAZEPAM [Concomitant]

REACTIONS (3)
  - NAUSEA [None]
  - ORAL PAIN [None]
  - VOMITING [None]
